FAERS Safety Report 8090116-3 (Version None)
Quarter: 2012Q1

REPORT INFORMATION
  Report Type: 
  Country: None (occurrence: None)
  Receive Date: 20120129
  Receipt Date: 20111021
  Transmission Date: 20120608
  Serious: No
  Sender: FDA-Public Use
  Company Number: US-ABBOTT-11P-163-0867450-00

PATIENT
  Age: 38 Year
  Sex: Female

DRUGS (3)
  1. HUMIRA [Suspect]
     Indication: CROHN'S DISEASE
     Dosage: (160 MG LOADING DOSE)
     Dates: start: 20111021
  2. LIALDA [Concomitant]
     Indication: CROHN'S DISEASE
  3. NUVARING [Concomitant]
     Indication: CONTRACEPTION

REACTIONS (1)
  - INJECTION SITE HAEMORRHAGE [None]
